FAERS Safety Report 7550326-8 (Version None)
Quarter: 2011Q2

REPORT INFORMATION
  Report Type: 
  Country: None (occurrence: None)
  Receive Date: 20110615
  Receipt Date: 20110603
  Transmission Date: 20111010
  Serious: Yes (Other)
  Sender: FDA-Public Use
  Company Number: SE-UCBSA-033193

PATIENT
  Sex: Male
  Weight: 82 kg

DRUGS (2)
  1. WARAN [Concomitant]
     Dosage: 16.5 TABLETS/WEEK
     Dates: start: 20090101
  2. KEPPRA [Suspect]
     Indication: EPILEPSY
     Route: 048
     Dates: start: 20080101

REACTIONS (4)
  - TACHYCARDIA [None]
  - BRADYCARDIA [None]
  - PERFORMANCE STATUS DECREASED [None]
  - SOMNOLENCE [None]
